FAERS Safety Report 5082411-7 (Version None)
Quarter: 2006Q3

REPORT INFORMATION
  Report Type: 
  Country: None (occurrence: None)
  Receive Date: 20060817
  Receipt Date: 20060721
  Transmission Date: 20061208
  Serious: Yes (Other)
  Sender: FDA-Public Use
  Company Number: IT-GLAXOSMITHKLINE-B0432319A

PATIENT
  Age: 40 Year
  Sex: Female
  Weight: 48.2 kg

DRUGS (4)
  1. KIVEXA [Suspect]
     Indication: HIV INFECTION
     Dosage: 900MG PER DAY
     Route: 048
     Dates: start: 20060626, end: 20060709
  2. REYATAZ [Concomitant]
     Dates: start: 20051107, end: 20060709
  3. VIREAD [Concomitant]
  4. EPIVIR [Concomitant]

REACTIONS (2)
  - NAUSEA [None]
  - VOMITING [None]
